FAERS Safety Report 20566793 (Version 1)
Quarter: 2022Q1

REPORT INFORMATION
  Report Type: Spontaneous
  Country: MA (occurrence: MA)
  Receive Date: 20220308
  Receipt Date: 20220308
  Transmission Date: 20220423
  Serious: No
  Sender: FDA-Public Use
  Company Number: MA-PFIZER INC-202100908651

PATIENT
  Age: 11 Year
  Sex: Female

DRUGS (1)
  1. GENOTROPIN [Suspect]
     Active Substance: SOMATROPIN
     Indication: Cytogenetic abnormality
     Dosage: 0.10, DAILY
     Route: 058

REACTIONS (2)
  - Device information output issue [Unknown]
  - Off label use [Unknown]

NARRATIVE: CASE EVENT DATE: 20210710
